FAERS Safety Report 9900795 (Version 1)
Quarter: 2014Q1

REPORT INFORMATION
  Report Type: Spontaneous
  Country: US (occurrence: US)
  Receive Date: 20140217
  Receipt Date: 20140217
  Transmission Date: 20141002
  Serious: Yes (Hospitalization, Other)
  Sender: FDA-Public Use
  Company Number: US-BAYER-2014-022050

PATIENT
  Age: 43 Year
  Sex: Female
  Weight: 62.13 kg

DRUGS (10)
  1. YAZ [Suspect]
     Dosage: UNK
     Dates: start: 20120621
  2. YASMIN [Suspect]
  3. HYDROXYZINE [Concomitant]
  4. CLONIDINE HYDROCHLORIDE [Concomitant]
     Dosage: 0.1 MG, Q4H, PRN
     Route: 048
  5. HYDRALAZINE HCL [Concomitant]
     Dosage: 10 MG, Q 4H, PRN
     Route: 048
  6. FAMOTIDINE [Concomitant]
     Dosage: 20 MG, BID
     Route: 048
  7. LORAZEPAM [Concomitant]
     Dosage: 1 MG, Q3HR PRN
     Route: 042
  8. LEVETIRACETAM [Concomitant]
     Dosage: 750 MG, Q 12 H
     Route: 042
  9. LEVETIRACETAM [Concomitant]
     Dosage: 750 MG, BID
     Route: 048
  10. SODIUM CHLORIDE [Concomitant]
     Dosage: 100 ML, UNK

REACTIONS (8)
  - Cerebrovascular accident [None]
  - Ischaemic stroke [None]
  - Transverse sinus thrombosis [None]
  - Jugular vein thrombosis [None]
  - Convulsion [None]
  - Visual impairment [None]
  - Paraesthesia [None]
  - Cognitive disorder [None]
